FAERS Safety Report 8921955 (Version 1)
Quarter: 2012Q4

REPORT INFORMATION
  Report Type: Spontaneous
  Country: US (occurrence: None)
  Receive Date: 20121119
  Receipt Date: 20121119
  Transmission Date: 20130627
  Serious: No
  Sender: FDA-Public Use
  Company Number: None

PATIENT
  Age: 60 Year
  Sex: Female
  Weight: 54.43 kg

DRUGS (3)
  1. ALPRAZOLAM [Suspect]
     Indication: MAJOR DEPRESSIVE DISORDER NOS
     Dosage: 2mg BID prn bid po
     Route: 048
     Dates: start: 20120501, end: 20121109
  2. ALPRAZOLAM [Suspect]
     Indication: GENERALIZED ANXIETY DISORDER
     Dosage: 2mg BID prn bid po
     Route: 048
     Dates: start: 20120501, end: 20121109
  3. ALPRAZOLAM [Suspect]
     Indication: PANIC DISORDER
     Dosage: 2mg BID prn bid po
     Route: 048
     Dates: start: 20120501, end: 20121109

REACTIONS (1)
  - Drug ineffective [None]
